FAERS Safety Report 8125148-X (Version None)
Quarter: 2012Q1

REPORT INFORMATION
  Report Type: 
  Country: None (occurrence: None)
  Receive Date: 20120206
  Receipt Date: 20120126
  Transmission Date: 20120608
  Serious: Yes (Disabling, Other)
  Sender: FDA-Public Use
  Company Number: NSR_00487_2012

PATIENT
  Age: 87 Year
  Sex: Male

DRUGS (4)
  1. CO-BENELDOPA [Concomitant]
  2. CODEINE [Concomitant]
  3. TRAMADOL HYDROCHLORIDE [Suspect]
     Indication: PAIN
     Dosage: DF ORAL
     Route: 048
  4. ENTACAPONE [Concomitant]

REACTIONS (3)
  - FREEZING PHENOMENON [None]
  - MOBILITY DECREASED [None]
  - GAIT DISTURBANCE [None]
